FAERS Safety Report 21608565 (Version 1)
Quarter: 2022Q4

REPORT INFORMATION
  Report Type: Spontaneous
  Country: US (occurrence: None)
  Receive Date: 20221116
  Receipt Date: 20221116
  Transmission Date: 20230113
  Serious: Yes (Other)
  Sender: FDA-Public Use
  Company Number: None

PATIENT
  Age: 31 Year
  Sex: Female
  Weight: 165.15 kg

DRUGS (1)
  1. ABILIFY [Suspect]
     Active Substance: ARIPIPRAZOLE
     Indication: Bipolar II disorder
     Dosage: FREQUENCY : DAILY;?
     Route: 048

REACTIONS (4)
  - Palpitations [None]
  - Dyspnoea [None]
  - Chest pain [None]
  - Electrocardiogram abnormal [None]

NARRATIVE: CASE EVENT DATE: 20221015
